FAERS Safety Report 22838633 (Version 3)
Quarter: 2023Q4

REPORT INFORMATION
  Report Type: Spontaneous
  Country: HK (occurrence: HK)
  Receive Date: 20230818
  Receipt Date: 20231006
  Transmission Date: 20240109
  Serious: No
  Sender: FDA-Public Use
  Company Number: HK-BAYER-2023A116573

PATIENT
  Age: 65 Year
  Sex: Female

DRUGS (2)
  1. ULTRAVIST [Suspect]
     Active Substance: IOPROMIDE
     Indication: Scan with contrast
     Dosage: 74 ML, ONCE
     Dates: start: 20230118, end: 20230118
  2. ULTRAVIST [Suspect]
     Active Substance: IOPROMIDE
     Indication: Scan adrenal gland

REACTIONS (3)
  - Contrast media reaction [None]
  - Rash [None]
  - Blood pressure increased [None]

NARRATIVE: CASE EVENT DATE: 20230118
